FAERS Safety Report 10648476 (Version 2)
Quarter: 2015Q1

REPORT INFORMATION
  Report Type: Report from Study
  Country: NL (occurrence: NL)
  Receive Date: 20141212
  Receipt Date: 20150107
  Transmission Date: 20150720
  Serious: Yes (Death)
  Sender: FDA-Public Use
  Company Number: PHHY2014NL162520

PATIENT
  Age: 79 Year
  Sex: Male

DRUGS (37)
  1. METFORMIN [Concomitant]
     Active Substance: METFORMIN HYDROCHLORIDE
     Indication: DIABETES MELLITUS
     Route: 065
  2. FOSTER                             /06206901/ [Concomitant]
     Indication: DIABETES MELLITUS
     Route: 065
  3. FOSTER                             /06206901/ [Concomitant]
     Indication: CARDIAC FAILURE
  4. CLOPIDOGREL [Concomitant]
     Active Substance: CLOPIDOGREL BISULFATE
     Indication: CARDIAC FAILURE
  5. CLOPIDOGREL [Concomitant]
     Active Substance: CLOPIDOGREL BISULFATE
     Indication: TRICUSPID VALVE INCOMPETENCE
  6. FUROSEMIDE. [Concomitant]
     Active Substance: FUROSEMIDE
     Indication: TRICUSPID VALVE INCOMPETENCE
  7. LANTUS [Concomitant]
     Active Substance: INSULIN GLARGINE
     Indication: DIABETES MELLITUS
     Route: 065
  8. METOPROLOL [Concomitant]
     Active Substance: METOPROLOL
     Indication: DIABETES MELLITUS
     Route: 065
  9. METOPROLOL [Concomitant]
     Active Substance: METOPROLOL
     Indication: CARDIAC FAILURE
  10. SPIRIVA [Concomitant]
     Active Substance: TIOTROPIUM BROMIDE MONOHYDRATE
     Indication: DIABETES MELLITUS
     Route: 065
  11. FUROSEMIDE. [Concomitant]
     Active Substance: FUROSEMIDE
     Indication: DIABETES MELLITUS
     Route: 065
  12. SANDOSTATIN LAR DEPOT [Suspect]
     Active Substance: OCTREOTIDE ACETATE
     Indication: NEUROENDOCRINE TUMOUR
     Dosage: 20 MG/2 ML, 1 X PER 4 WEEKS
     Route: 065
     Dates: start: 201310, end: 201412
  13. ACENOCOUMAROL [Concomitant]
     Active Substance: ACENOCOUMAROL
     Indication: TRICUSPID VALVE INCOMPETENCE
  14. PARACETAMOL [Concomitant]
     Active Substance: ACETAMINOPHEN
     Indication: CARDIAC FAILURE
  15. CLOPIDOGREL [Concomitant]
     Active Substance: CLOPIDOGREL BISULFATE
     Indication: DIABETES MELLITUS
     Route: 065
  16. LANTUS [Concomitant]
     Active Substance: INSULIN GLARGINE
     Indication: TRICUSPID VALVE INCOMPETENCE
  17. NOVORAPID [Concomitant]
     Active Substance: INSULIN ASPART
     Indication: DIABETES MELLITUS
     Route: 065
  18. NOVORAPID [Concomitant]
     Active Substance: INSULIN ASPART
     Indication: TRICUSPID VALVE INCOMPETENCE
  19. OMEPRAZOLE. [Concomitant]
     Active Substance: OMEPRAZOLE
     Indication: DIABETES MELLITUS
     Route: 065
  20. SPIRIVA [Concomitant]
     Active Substance: TIOTROPIUM BROMIDE MONOHYDRATE
     Indication: TRICUSPID VALVE INCOMPETENCE
  21. GLICLAZIDE [Concomitant]
     Active Substance: GLICLAZIDE
     Indication: CARDIAC FAILURE
  22. ACENOCOUMAROL [Concomitant]
     Active Substance: ACENOCOUMAROL
     Indication: CARDIAC FAILURE
  23. METFORMIN [Concomitant]
     Active Substance: METFORMIN HYDROCHLORIDE
     Indication: TRICUSPID VALVE INCOMPETENCE
  24. OMEPRAZOLE. [Concomitant]
     Active Substance: OMEPRAZOLE
     Indication: CARDIAC FAILURE
  25. OMEPRAZOLE. [Concomitant]
     Active Substance: OMEPRAZOLE
     Indication: TRICUSPID VALVE INCOMPETENCE
  26. SPIRIVA [Concomitant]
     Active Substance: TIOTROPIUM BROMIDE MONOHYDRATE
     Indication: CARDIAC FAILURE
  27. FUROSEMIDE. [Concomitant]
     Active Substance: FUROSEMIDE
     Indication: CARDIAC FAILURE
  28. LANTUS [Concomitant]
     Active Substance: INSULIN GLARGINE
     Indication: CARDIAC FAILURE
  29. ACENOCOUMAROL [Concomitant]
     Active Substance: ACENOCOUMAROL
     Indication: DIABETES MELLITUS
     Route: 065
  30. METFORMIN [Concomitant]
     Active Substance: METFORMIN HYDROCHLORIDE
     Indication: CARDIAC FAILURE
  31. PARACETAMOL [Concomitant]
     Active Substance: ACETAMINOPHEN
     Indication: DIABETES MELLITUS
     Route: 065
  32. PARACETAMOL [Concomitant]
     Active Substance: ACETAMINOPHEN
     Indication: TRICUSPID VALVE INCOMPETENCE
  33. METOPROLOL [Concomitant]
     Active Substance: METOPROLOL
     Indication: TRICUSPID VALVE INCOMPETENCE
  34. FOSTER                             /06206901/ [Concomitant]
     Indication: TRICUSPID VALVE INCOMPETENCE
  35. GLICLAZIDE [Concomitant]
     Active Substance: GLICLAZIDE
     Indication: DIABETES MELLITUS
     Route: 065
  36. NOVORAPID [Concomitant]
     Active Substance: INSULIN ASPART
     Indication: CARDIAC FAILURE
  37. GLICLAZIDE [Concomitant]
     Active Substance: GLICLAZIDE
     Indication: TRICUSPID VALVE INCOMPETENCE

REACTIONS (1)
  - Cardiac failure [Fatal]

NARRATIVE: CASE EVENT DATE: 201310
